FAERS Safety Report 4751621-8 (Version None)
Quarter: 2005Q3

REPORT INFORMATION
  Report Type: 
  Country: None (occurrence: None)
  Receive Date: 20050822
  Receipt Date: 20050726
  Transmission Date: 20060218
  Serious: Yes (Hospitalization)
  Sender: FDA-Public Use
  Company Number: 11876

PATIENT
  Age: 45 Year
  Sex: Female

DRUGS (1)
  1. ERYTHROMYCIN [Suspect]
     Indication: TOOTH DISORDER
     Dosage: 250 MG TID PO
     Route: 048
     Dates: start: 20050721, end: 20050723

REACTIONS (5)
  - BODY TEMPERATURE INCREASED [None]
  - DIARRHOEA [None]
  - DRUG HYPERSENSITIVITY [None]
  - HEADACHE [None]
  - VOMITING [None]
